FAERS Safety Report 9672459 (Version 2)
Quarter: 2013Q4

REPORT INFORMATION
  Report Type: Report from Study
  Country: JP (occurrence: JP)
  Receive Date: 20131106
  Receipt Date: 20131129
  Transmission Date: 20140711
  Serious: Yes (Hospitalization)
  Sender: FDA-Public Use
  Company Number: JP-TAKEDA-2013TJP002380

PATIENT
  Age: 78 Year
  Sex: Female
  Weight: 38 kg

DRUGS (8)
  1. LANSOPRAZOLE [Suspect]
     Indication: PROPHYLAXIS AGAINST GASTROINTESTINAL ULCER
     Dosage: 15 MG, QD
     Route: 048
     Dates: start: 20120811, end: 20121210
  2. ECARD COMBINATION [Concomitant]
     Dosage: 1 DF, QD
     Route: 048
  3. BASEN [Concomitant]
     Dosage: 0.9 MG, 1 DAYS
     Route: 048
  4. ACTOS [Concomitant]
     Dosage: 15 MG, 1 DAYS
     Route: 048
  5. BAYASPIRIN [Concomitant]
     Indication: THROMBOSIS PROPHYLAXIS
     Dosage: 100 MG, 1 DAYS
     Route: 048
  6. PLETAAL [Concomitant]
     Indication: CEREBRAL INFARCTION
     Dosage: 200 MG, 1 DAYS
     Route: 048
  7. LOCHOL                             /01224502/ [Concomitant]
     Dosage: 20 MG,1 DAYS
     Route: 048
  8. MECOBALAMIN [Concomitant]
     Indication: NEUROPATHY PERIPHERAL
     Dosage: 1500 ?G,1 DAYS
     Route: 048

REACTIONS (1)
  - Accidental device ingestion [Recovered/Resolved]
